FAERS Safety Report 7543491-X (Version None)
Quarter: 2011Q2

REPORT INFORMATION
  Report Type: 
  Country: None (occurrence: None)
  Receive Date: 20110613
  Receipt Date: 20110603
  Transmission Date: 20111010
  Serious: Yes (Other)
  Sender: FDA-Public Use
  Company Number: IE-NOVOPROD-329423

PATIENT
  Age: 71 Year
  Sex: Female
  Weight: 85 kg

DRUGS (6)
  1. BENDROFLUMETHIAZIDE [Concomitant]
     Dosage: 1.25
     Route: 048
  2. METFORMIN HCL [Concomitant]
     Dosage: 1 G, BID
     Route: 048
  3. VICTOZA [Suspect]
     Indication: TYPE 2 DIABETES MELLITUS
     Dosage: 1.2 MG, QD
     Route: 058
     Dates: start: 20110301, end: 20110523
  4. ATORVASTATIN [Concomitant]
     Dosage: 10
     Route: 048
  5. NSA [Concomitant]
     Dosage: 75
     Route: 048
  6. GLICLAZIDE [Concomitant]
     Dosage: 60
     Route: 048

REACTIONS (4)
  - QUALITY OF LIFE DECREASED [None]
  - VOMITING [None]
  - DIZZINESS [None]
  - NAUSEA [None]
